FAERS Safety Report 6473903-4 (Version None)
Quarter: 2009Q4

REPORT INFORMATION
  Report Type: 
  Country: None (occurrence: None)
  Receive Date: 20091204
  Receipt Date: 20090909
  Transmission Date: 20100525
  Serious: No
  Sender: FDA-Public Use
  Company Number: A0801647A

PATIENT
  Age: 28 Year
  Sex: Female
  Weight: 82.3 kg

DRUGS (2)
  1. LAMICTAL [Suspect]
     Indication: DRUG USE FOR UNKNOWN INDICATION
     Dosage: 25MG PER DAY
     Route: 048
     Dates: end: 20090809
  2. LITHIUM CARBONATE [Concomitant]
     Dosage: 300MG PER DAY
     Route: 048

REACTIONS (1)
  - RASH [None]
